FAERS Safety Report 13198034 (Version 1)
Quarter: 2017Q1

REPORT INFORMATION
  Report Type: Spontaneous
  Country: US (occurrence: US)
  Receive Date: 20170208
  Receipt Date: 20170208
  Transmission Date: 20170428
  Serious: No
  Sender: FDA-Public Use
  Company Number: US-PERRIGO-16US016753

PATIENT
  Age: 38 Year
  Sex: Male
  Weight: 81.63 kg

DRUGS (2)
  1. IBUPROFEN AND DIPHENHYDRAMINE CITRATE [Suspect]
     Active Substance: DIPHENHYDRAMINE CITRATE\IBUPROFEN
     Dosage: 2 TABLETS, SINGLE
     Route: 048
     Dates: start: 20160531, end: 20160531
  2. IBUPROFEN AND DIPHENHYDRAMINE CITRATE [Suspect]
     Active Substance: DIPHENHYDRAMINE CITRATE\IBUPROFEN
     Indication: PAIN
     Dosage: 2 TABLETS, TWICE IN 2 HOURS
     Route: 048
     Dates: start: 20160530, end: 20160530

REACTIONS (5)
  - Nausea [Recovered/Resolved]
  - Accidental overdose [Recovered/Resolved]
  - Somnolence [Recovered/Resolved]
  - Product name confusion [Recovered/Resolved]
  - Dizziness [Recovered/Resolved]

NARRATIVE: CASE EVENT DATE: 20160530
